FAERS Safety Report 20198941 (Version 2)
Quarter: 2022Q1

REPORT INFORMATION
  Report Type: Spontaneous
  Country: US (occurrence: US)
  Receive Date: 20211217
  Receipt Date: 20220114
  Transmission Date: 20220423
  Serious: No
  Sender: FDA-Public Use
  Company Number: US-PFIZER INC-202101630702

PATIENT
  Age: 50 Year
  Sex: Female
  Weight: 121.11 kg

DRUGS (2)
  1. SOMATROPIN [Suspect]
     Active Substance: SOMATROPIN
     Indication: Brain neoplasm
     Dosage: 0.4 MG
  2. SOMATROPIN [Suspect]
     Active Substance: SOMATROPIN
     Indication: Hypothalamo-pituitary disorder

REACTIONS (2)
  - Device issue [Unknown]
  - Device leakage [Unknown]
